FAERS Safety Report 9559221 (Version 1)
Quarter: 2013Q3

REPORT INFORMATION
  Report Type: Spontaneous
  Country: US (occurrence: None)
  Receive Date: 20130913
  Receipt Date: 20130913
  Transmission Date: 20140515
  Serious: No
  Sender: FDA-Public Use
  Company Number: 1000045900

PATIENT
  Sex: Male

DRUGS (1)
  1. DALIRESP (ROFLUMILAST) [Suspect]
     Dates: end: 2013

REACTIONS (6)
  - Back pain [None]
  - Abdominal pain upper [None]
  - Decreased appetite [None]
  - Gastrointestinal motility disorder [None]
  - Insomnia [None]
  - Headache [None]
